FAERS Safety Report 19085328 (Version 1)
Quarter: 2021Q2

REPORT INFORMATION
  Report Type: Other
  Country: CA (occurrence: CA)
  Receive Date: 20210402
  Receipt Date: 20210402
  Transmission Date: 20210717
  Serious: Yes (Death, Other)
  Sender: FDA-Public Use
  Company Number: CA-APOTEX-2020AP014179

PATIENT
  Sex: Female

DRUGS (3)
  1. APO?DASATINIB [Suspect]
     Active Substance: DASATINIB
     Dosage: 50 MILLIGRAM
     Route: 048
  2. IMATINIB. [Suspect]
     Active Substance: IMATINIB MESYLATE
     Indication: PRODUCT USED FOR UNKNOWN INDICATION
     Dosage: UNK
     Route: 065
  3. APO?DASATINIB [Suspect]
     Active Substance: DASATINIB
     Indication: CHRONIC MYELOID LEUKAEMIA
     Dosage: 70 MILLIGRAM
     Route: 048
     Dates: start: 20200601

REACTIONS (3)
  - Gastrointestinal haemorrhage [Unknown]
  - Upper gastrointestinal haemorrhage [Unknown]
  - Death [Fatal]
